FAERS Safety Report 6358286-2 (Version None)
Quarter: 2009Q3

REPORT INFORMATION
  Report Type: 
  Country: None (occurrence: None)
  Receive Date: 20090916
  Receipt Date: 20090904
  Transmission Date: 20100115
  Serious: Yes (Hospitalization)
  Sender: FDA-Public Use
  Company Number: PHEH2009US10917

PATIENT
  Sex: Male

DRUGS (2)
  1. EXJADE [Suspect]
     Indication: ACUTE MYELOID LEUKAEMIA
     Dosage: 1000 MG DAILY
     Route: 048
  2. EXJADE [Suspect]
     Indication: SERUM FERRITIN INCREASED

REACTIONS (1)
  - HYPERTENSION [None]
